FAERS Safety Report 10257600 (Version 1)
Quarter: 2014Q2

REPORT INFORMATION
  Report Type: Spontaneous
  Country: US (occurrence: None)
  Receive Date: 20140623
  Receipt Date: 20140623
  Transmission Date: 20141212
  Serious: Yes (Life-Threatening)
  Sender: FDA-Public Use
  Company Number: None

PATIENT
  Age: 40 Year
  Sex: Female
  Weight: 83.92 kg

DRUGS (16)
  1. BUTRANS TRANSDERMAL SYSTEM [Suspect]
     Indication: PAIN
     Dosage: ONE PATCH EVERY 7 DAYS, WEAR FOR 7 DAYS, APPLIED AS MEDICATED PATCH TO SKIN
     Route: 061
     Dates: start: 20140604, end: 20140617
  2. LYRICA [Concomitant]
  3. HYDROXYZINE [Concomitant]
  4. VERAPAMIL [Concomitant]
  5. FLOMAX [Concomitant]
  6. FROVATRIPTAN [Concomitant]
  7. GIANVI BIRTH CONTROL PILLS [Concomitant]
  8. OXYCODONE [Concomitant]
  9. LORZONE [Concomitant]
  10. ZANAFLEX [Concomitant]
  11. AMBIEN [Concomitant]
  12. SYMBICORT [Concomitant]
  13. FLUTICASONE NASAL SPRAY [Concomitant]
  14. MEDTRONIC INTERSTIM NEUROSTIMULATOR [Concomitant]
  15. GNC ULTRAMEGA WOMEN^S JOINT FORMULA VITAPACKS [Concomitant]
  16. TURMERIC SUPPLEMENT [Concomitant]

REACTIONS (8)
  - Constipation [None]
  - Abdominal distension [None]
  - Application site pruritus [None]
  - Asthma [None]
  - Drug ineffective [None]
  - Hypersensitivity [None]
  - Application site urticaria [None]
  - Application site burn [None]
